FAERS Safety Report 16874600 (Version 1)
Quarter: 2019Q4

REPORT INFORMATION
  Report Type: Report from Study
  Country: US (occurrence: US)
  Receive Date: 20191001
  Receipt Date: 20191001
  Transmission Date: 20200122
  Serious: Yes (Other)
  Sender: FDA-Public Use
  Company Number: US-AGIOS-1909US01397

PATIENT

DRUGS (1)
  1. TIBSOVO [Suspect]
     Active Substance: IVOSIDENIB
     Indication: ACUTE LEUKAEMIA
     Dosage: 250 MILLIGRAM, 2 TABLETS (500MG), QD
     Route: 048

REACTIONS (3)
  - Drug interaction [Unknown]
  - Cardiac disorder [Unknown]
  - Off label use [Unknown]
